FAERS Safety Report 6668861-3 (Version None)
Quarter: 2010Q2

REPORT INFORMATION
  Report Type: 
  Country: None (occurrence: None)
  Receive Date: 20100402
  Receipt Date: 20100319
  Transmission Date: 20101027
  Serious: Yes (Death)
  Sender: FDA-Public Use
  Company Number: AE 2010-039

PATIENT
  Age: 29 Year
  Sex: Male

DRUGS (3)
  1. FAZACLO ODT [Suspect]
     Indication: SCHIZOPHRENIA
     Dosage: 200MG DAILY PO
     Route: 048
     Dates: start: 20071126, end: 20091222
  2. LITHIUM [Concomitant]
  3. HALDOL [Concomitant]

REACTIONS (1)
  - COMPLETED SUICIDE [None]
